FAERS Safety Report 6140009-3 (Version None)
Quarter: 2009Q1

REPORT INFORMATION
  Report Type: 
  Country: None (occurrence: None)
  Receive Date: 20090324
  Receipt Date: 20090318
  Transmission Date: 20090719
  Serious: Yes (Hospitalization)
  Sender: FDA-Public Use
  Company Number: 1000003824

PATIENT
  Sex: Male
  Weight: 70 kg

DRUGS (1)
  1. MEMANTINE HCL [Suspect]
     Indication: DEMENTIA
     Dosage: 20 MG (20 MG, 1 IN 1 D),ORAL
     Route: 048
     Dates: start: 20081201

REACTIONS (6)
  - BLOOD GLUCOSE INCREASED [None]
  - BLOOD SODIUM DECREASED [None]
  - FEBRILE INFECTION [None]
  - INFLAMMATION [None]
  - SOMNOLENCE [None]
  - SYNCOPE [None]
